APPROVED DRUG PRODUCT: DIFLUCAN IN DEXTROSE 5% IN PLASTIC CONTAINER
Active Ingredient: FLUCONAZOLE
Strength: 400MG/200ML (2MG/ML)
Dosage Form/Route: INJECTABLE;INJECTION
Application: N019950 | Product #005
Applicant: PFIZER INC
Approved: Jul 8, 1994 | RLD: Yes | RS: No | Type: DISCN